FAERS Safety Report 12914696 (Version 1)
Quarter: 2016Q4

REPORT INFORMATION
  Report Type: Spontaneous
  Country: US (occurrence: US)
  Receive Date: 20161106
  Receipt Date: 20161106
  Transmission Date: 20170207
  Serious: No
  Sender: FDA-Public Use
  Company Number: US-RELYPSA-RLY2016001985

PATIENT
  Sex: Female

DRUGS (19)
  1. BYSTOLIC [Concomitant]
     Active Substance: NEBIVOLOL HYDROCHLORIDE
  2. BIOTIN [Concomitant]
     Active Substance: BIOTIN
  3. RESTORIL [Concomitant]
     Active Substance: TEMAZEPAM
  4. MAGNESIUM [Concomitant]
     Active Substance: MAGNESIUM
  5. FOLGARD [Concomitant]
  6. ESTRADIOL. [Concomitant]
     Active Substance: ESTRADIOL
  7. IMITREX [Concomitant]
     Active Substance: SUMATRIPTAN SUCCINATE
  8. TRICOR                             /00090101/ [Concomitant]
     Active Substance: ADENOSINE
  9. SYMBICORT [Concomitant]
     Active Substance: BUDESONIDE\FORMOTEROL FUMARATE DIHYDRATE
  10. SLOW-MAG [Concomitant]
     Active Substance: MAGNESIUM CHLORIDE
  11. VERAPAMIL HCL [Concomitant]
     Active Substance: VERAPAMIL HYDROCHLORIDE
  12. VITAMIN D3 [Concomitant]
     Active Substance: CHOLECALCIFEROL
  13. VELTASSA [Suspect]
     Active Substance: PATIROMER
     Indication: HYPERKALAEMIA
     Dosage: 8.4 G, QD
     Route: 048
  14. VALIUM [Concomitant]
     Active Substance: DIAZEPAM
  15. TRAVATAN Z [Concomitant]
     Active Substance: TRAVOPROST
  16. SODIUM BICARBONATE. [Concomitant]
     Active Substance: SODIUM BICARBONATE
  17. GABAPENTIN. [Concomitant]
     Active Substance: GABAPENTIN
  18. EDARBI [Concomitant]
     Active Substance: AZILSARTAN KAMEDOXOMIL
  19. ALDACTONE [Concomitant]
     Active Substance: SPIRONOLACTONE

REACTIONS (2)
  - No adverse event [Unknown]
  - Drug dose omission [Unknown]
